FAERS Safety Report 5141640-4 (Version None)
Quarter: 2006Q4

REPORT INFORMATION
  Report Type: 
  Country: None (occurrence: None)
  Receive Date: 20061101
  Receipt Date: 20061002
  Transmission Date: 20070319
  Serious: Yes (Hospitalization)
  Sender: FDA-Public Use
  Company Number: US-GLAXOSMITHKLINE-A0622017A

PATIENT
  Age: 56 Year
  Sex: Male

DRUGS (7)
  1. OASIS MOISTURIZING MOUTH SPRAY [Suspect]
     Indication: DRY MOUTH
     Route: 048
     Dates: start: 20060930, end: 20060930
  2. COUMADIN [Concomitant]
  3. LISINOPRIL [Concomitant]
  4. LIPITOR [Concomitant]
  5. ALBUTEROL [Concomitant]
  6. COMBIVENT [Concomitant]
  7. OXYGEN [Concomitant]
     Dosage: 2L PER DAY
     Route: 055

REACTIONS (7)
  - BRONCHOSPASM [None]
  - COUGH [None]
  - DYSPHAGIA [None]
  - DYSPHONIA [None]
  - DYSPNOEA [None]
  - GENERALISED ERYTHEMA [None]
  - THROAT IRRITATION [None]
